FAERS Safety Report 13694097 (Version 1)
Quarter: 2017Q2

REPORT INFORMATION
  Report Type: Spontaneous
  Country: US (occurrence: US)
  Receive Date: 20170626
  Receipt Date: 20170626
  Transmission Date: 20170830
  Serious: Yes (Other)
  Sender: FDA-Public Use
  Company Number: None

PATIENT
  Age: 30 Year
  Sex: Female
  Weight: 56.25 kg

DRUGS (4)
  1. CHAMOMILE TEA [Concomitant]
     Active Substance: MATRICARIA RECUTITA
  2. KLONOPIN [Suspect]
     Active Substance: CLONAZEPAM
     Indication: ANXIETY
     Dosage: ?          OTHER STRENGTH:MG;QUANTITY:2 TABLET(S);?
     Route: 048
  3. MELATONIN [Concomitant]
     Active Substance: MELATONIN
  4. JUICE PLUS SUPPLEMENTS [Concomitant]

REACTIONS (16)
  - Nightmare [None]
  - Withdrawal syndrome [None]
  - Nausea [None]
  - Muscle twitching [None]
  - Mood swings [None]
  - Heart rate increased [None]
  - Hallucination [None]
  - Myalgia [None]
  - Social avoidant behaviour [None]
  - Panic attack [None]
  - Pain [None]
  - Anxiety [None]
  - Insomnia [None]
  - Vomiting [None]
  - Depression [None]
  - Headache [None]
